FAERS Safety Report 21115587 (Version 1)
Quarter: 2022Q3

REPORT INFORMATION
  Report Type: Spontaneous
  Country: US (occurrence: US)
  Receive Date: 20220721
  Receipt Date: 20220721
  Transmission Date: 20221027
  Serious: No
  Sender: FDA-Public Use
  Company Number: US-SA-SAC20220720000116

PATIENT
  Sex: Female

DRUGS (2)
  1. ADLYXIN [Suspect]
     Active Substance: LIXISENATIDE
     Indication: Diabetes mellitus
     Dosage: 10 MCG,
     Route: 065
  2. ADLYXIN [Suspect]
     Active Substance: LIXISENATIDE
     Dosage: 20 UG
     Route: 065

REACTIONS (2)
  - Sleep disorder [Unknown]
  - Feeling hot [Unknown]
